FAERS Safety Report 6664563-8 (Version None)
Quarter: 2010Q2

REPORT INFORMATION
  Report Type: 
  Country: None (occurrence: None)
  Receive Date: 20100401
  Receipt Date: 20100323
  Transmission Date: 20101027
  Serious: Yes (Hospitalization)
  Sender: FDA-Public Use
  Company Number: US-ASTRAZENECA-2010SE07909

PATIENT
  Age: 89 Year
  Sex: Female
  Weight: 45.8 kg

DRUGS (8)
  1. ARIMIDEX [Suspect]
     Route: 048
     Dates: start: 20020101, end: 20070101
  2. LISINOPRIL [Suspect]
     Dosage: DAILY
     Route: 048
  3. TOPROL-XL [Suspect]
     Indication: BLOOD PRESSURE
     Route: 048
     Dates: start: 20050101
  4. TOPROL-XL [Suspect]
     Route: 048
     Dates: start: 20050101
  5. TOPROL-XL [Suspect]
     Route: 048
     Dates: start: 20050101
  6. PLAVIX [Suspect]
     Route: 065
  7. ZANTAC [Concomitant]
     Dosage: TWO TIMES A DAY
  8. LORAZEPAM [Concomitant]
     Indication: SLEEP DISORDER

REACTIONS (15)
  - ARTHRALGIA [None]
  - ASTHENIA [None]
  - BALANCE DISORDER [None]
  - CARDIAC PACEMAKER REPLACEMENT [None]
  - DIZZINESS [None]
  - DRUG INEFFECTIVE [None]
  - FALL [None]
  - FATIGUE [None]
  - HEAD INJURY [None]
  - HYPERTENSION [None]
  - OEDEMA PERIPHERAL [None]
  - PERIPHERAL COLDNESS [None]
  - POST PROCEDURAL HAEMORRHAGE [None]
  - PRURITUS [None]
  - ULCER [None]
